FAERS Safety Report 9072519 (Version 1)
Quarter: 2013Q1

REPORT INFORMATION
  Report Type: Report from Study
  Country: US (occurrence: US)
  Receive Date: 20130129
  Receipt Date: 20130129
  Transmission Date: 20140127
  Serious: Yes (Hospitalization)
  Sender: FDA-Public Use
  Company Number: US-NAPPMUNDI-USA-2013-0097838

PATIENT
  Age: 62 Year
  Sex: Male

DRUGS (1)
  1. OXYCONTIN (NDA 22-272) [Suspect]
     Indication: PROSTATE CANCER METASTATIC
     Dosage: 10 MG, Q12H
     Route: 048

REACTIONS (2)
  - Localised infection [Unknown]
  - Product packaging issue [Unknown]
